FAERS Safety Report 5225797-2 (Version None)
Quarter: 2007Q1

REPORT INFORMATION
  Report Type: 
  Country: None (occurrence: None)
  Receive Date: 20070130
  Receipt Date: 20070130
  Transmission Date: 20070707
  Serious: Yes (Other)
  Sender: FDA-Public Use
  Company Number: None

PATIENT
  Sex: Female
  Weight: 49.8957 kg

DRUGS (2)
  1. SPIRIVA [Suspect]
     Indication: ASTHMA
     Dosage: 1 INHALATION  QD  INHAL
     Route: 055
     Dates: start: 20060612, end: 20061127
  2. SPIRIVA [Suspect]
     Indication: CHRONIC OBSTRUCTIVE PULMONARY DISEASE
     Dosage: 1 INHALATION  QD  INHAL
     Route: 055
     Dates: start: 20060612, end: 20061127

REACTIONS (1)
  - VISION BLURRED [None]
